FAERS Safety Report 4900840-6 (Version None)
Quarter: 2006Q1

REPORT INFORMATION
  Report Type: 
  Country: None (occurrence: None)
  Receive Date: 20060113
  Receipt Date: 20051201
  Transmission Date: 20060701
  Serious: No
  Sender: FDA-Public Use
  Company Number: 2005SP004242

PATIENT
  Age: 50 Year
  Sex: Male

DRUGS (1)
  1. LUNESTA [Suspect]
     Dosage: 2 MG; HS; ORAL
     Route: 048
     Dates: start: 20051101, end: 20051101

REACTIONS (7)
  - AFFECTIVE DISORDER [None]
  - HEADACHE [None]
  - NAUSEA [None]
  - NERVOUSNESS [None]
  - PARADOXICAL DRUG REACTION [None]
  - PRURITUS [None]
  - STOMACH DISCOMFORT [None]
